FAERS Safety Report 5916318-7 (Version None)
Quarter: 2008Q4

REPORT INFORMATION
  Report Type: 
  Country: None (occurrence: None)
  Receive Date: 20081013
  Receipt Date: 20081008
  Transmission Date: 20090506
  Serious: Yes (Death)
  Sender: FDA-Public Use
  Company Number: PHHY2008BR14892

PATIENT
  Sex: Male
  Weight: 88.2 kg

DRUGS (4)
  1. SANDIMMUNE [Suspect]
     Indication: PROPHYLAXIS AGAINST GRAFT VERSUS HOST DISEASE
     Dosage: 80 MG, Q12H
     Route: 042
     Dates: start: 20080415, end: 20080523
  2. ACYCLOVIR [Concomitant]
  3. URSODIOL [Concomitant]
  4. AMLODIPINE [Concomitant]

REACTIONS (6)
  - HYPOACUSIS [None]
  - MECHANICAL VENTILATION [None]
  - PARAESTHESIA [None]
  - RESPIRATORY FAILURE [None]
  - VERTIGO [None]
  - VISION BLURRED [None]
